FAERS Safety Report 21639921 (Version 2)
Quarter: 2023Q1

REPORT INFORMATION
  Report Type: Report from Study
  Country: US (occurrence: US)
  Receive Date: 20221124
  Receipt Date: 20230222
  Transmission Date: 20230418
  Serious: Yes (Other)
  Sender: FDA-Public Use
  Company Number: US-TAKEDA-US201933502

PATIENT
  Sex: Male

DRUGS (1)
  1. HUMAN IMMUNOGLOBULIN G [Suspect]
     Active Substance: HUMAN IMMUNOGLOBULIN G
     Indication: Primary immunodeficiency syndrome
     Dosage: UNK UNK, 1/WEEK
     Route: 065

REACTIONS (6)
  - Adrenal insufficiency [Unknown]
  - Nasopharyngitis [Recovered/Resolved]
  - Fall [Unknown]
  - Dehydration [Recovering/Resolving]
  - Sinusitis [Unknown]
  - Migraine [Unknown]
